FAERS Safety Report 15267430 (Version 1)
Quarter: 2018Q3

REPORT INFORMATION
  Report Type: Spontaneous
  Country: US (occurrence: US)
  Receive Date: 20180724
  Receipt Date: 20180724
  Transmission Date: 20181010
  Serious: Yes (Other)
  Sender: FDA-Public Use
  Company Number: None

PATIENT
  Age: 3 Year
  Sex: Female
  Weight: 14.85 kg

DRUGS (2)
  1. POLYETHYLENE GLYCOL 3350NF [Suspect]
     Active Substance: POLYETHYLENE GLYCOL 3350
     Indication: CONSTIPATION
     Route: 048
     Dates: start: 20180521, end: 20180721
  2. NONE [Concomitant]
     Active Substance: UNSPECIFIED INGREDIENT

REACTIONS (6)
  - Hallucination, visual [None]
  - Encephalopathy [None]
  - Somnolence [None]
  - Enterovirus infection [None]
  - Insomnia [None]
  - Influenza [None]

NARRATIVE: CASE EVENT DATE: 20180721
